FAERS Safety Report 7135103-4 (Version None)
Quarter: 2010Q4

REPORT INFORMATION
  Report Type: 
  Country: None (occurrence: None)
  Receive Date: 20101203
  Receipt Date: 20101118
  Transmission Date: 20110411
  Serious: Yes (Hospitalization)
  Sender: FDA-Public Use
  Company Number: US-ELI_LILLY_AND_COMPANY-US201011005438

PATIENT
  Age: 62 Year
  Sex: Female

DRUGS (7)
  1. CYMBALTA [Suspect]
     Indication: NEUROPATHY PERIPHERAL
     Dosage: 60 MG, DAILY (1/D)
     Dates: start: 20070101, end: 20101010
  2. MILNACIPRAN [Concomitant]
     Indication: NEUROPATHY PERIPHERAL
     Dates: start: 20101011
  3. TOPAMAX [Concomitant]
     Indication: NEUROPATHY PERIPHERAL
     Dates: start: 20101011
  4. ACIPHEX [Concomitant]
  5. METOPROLOL [Concomitant]
  6. ARTHROTEC [Concomitant]
  7. PRILOSEC [Concomitant]

REACTIONS (20)
  - BLOOD TRIGLYCERIDES INCREASED [None]
  - DRUG WITHDRAWAL SYNDROME [None]
  - DYSPEPSIA [None]
  - ERYTHEMA [None]
  - FALL [None]
  - FEELING COLD [None]
  - GAIT DISTURBANCE [None]
  - HOT FLUSH [None]
  - HUMERUS FRACTURE [None]
  - HYPERHIDROSIS [None]
  - HYPOAESTHESIA [None]
  - JOINT INJURY [None]
  - MALAISE [None]
  - NEUROPATHY PERIPHERAL [None]
  - OFF LABEL USE [None]
  - PAIN IN EXTREMITY [None]
  - SINUS HEADACHE [None]
  - SPINAL FUSION SURGERY [None]
  - THROMBOSIS [None]
  - URINARY RETENTION [None]
